FAERS Safety Report 19181474 (Version 1)
Quarter: 2021Q2

REPORT INFORMATION
  Report Type: Spontaneous
  Country: NL (occurrence: NL)
  Receive Date: 20210426
  Receipt Date: 20210426
  Transmission Date: 20210717
  Serious: Yes (Hospitalization, Disabling)
  Sender: FDA-Public Use
  Company Number: NL-ALLERGAN-2116186US

PATIENT
  Sex: Female
  Weight: 45 kg

DRUGS (2)
  1. ETHINYLESTRADIOL/DROSPIRENON [Concomitant]
     Indication: PRODUCT USED FOR UNKNOWN INDICATION
     Dosage: TABLET, 20 ?G (MICROGRAM)/3 MG (MILLIGRAM)
     Route: 065
  2. ESCITALOPRAM OXALATE ? BP [Suspect]
     Active Substance: ESCITALOPRAM OXALATE
     Indication: ANXIETY
     Dosage: 13 DROPS PER DAY
     Route: 065
     Dates: start: 201812

REACTIONS (3)
  - Seizure [Recovering/Resolving]
  - Retching [Unknown]
  - Nausea [Unknown]

NARRATIVE: CASE EVENT DATE: 20200306
